FAERS Safety Report 21392384 (Version 1)
Quarter: 2022Q3

REPORT INFORMATION
  Report Type: Spontaneous
  Country: US (occurrence: None)
  Receive Date: 20220928
  Receipt Date: 20220928
  Transmission Date: 20221027
  Serious: Yes (Hospitalization, Other)
  Sender: FDA-Public Use
  Company Number: None

PATIENT
  Age: 70 Year
  Sex: Male
  Weight: 121.5 kg

DRUGS (8)
  1. LISINOPRIL [Suspect]
     Active Substance: LISINOPRIL
     Indication: Hypertension
     Dosage: OTHER QUANTITY : 1 CAPSULE(S);?FREQUENCY : DAILY;?
     Route: 048
     Dates: start: 20220725, end: 20220807
  2. ATORVASTATIN [Concomitant]
     Active Substance: ATORVASTATIN
  3. CARVEDILOL [Concomitant]
     Active Substance: CARVEDILOL
  4. XARELTO [Concomitant]
     Active Substance: RIVAROXABAN
  5. VERAPAMIL [Concomitant]
     Active Substance: VERAPAMIL HYDROCHLORIDE
  6. FINASTERIDE [Concomitant]
     Active Substance: FINASTERIDE
  7. TAMSULOSIN [Concomitant]
     Active Substance: TAMSULOSIN
  8. TRIAMTERENE HCTZ [Concomitant]

REACTIONS (6)
  - Dizziness [None]
  - Dyspnoea [None]
  - Myalgia [None]
  - Muscle spasms [None]
  - Neck pain [None]
  - Arthralgia [None]

NARRATIVE: CASE EVENT DATE: 20220806
